FAERS Safety Report 17093050 (Version 2)
Quarter: 2020Q2

REPORT INFORMATION
  Report Type: Spontaneous
  Country: TH (occurrence: TH)
  Receive Date: 20191129
  Receipt Date: 20200507
  Transmission Date: 20200713
  Serious: Yes (Other)
  Sender: FDA-Public Use
  Company Number: TH-ASTRAZENECA-2019SF67476

PATIENT
  Age: 62 Year
  Sex: Female

DRUGS (1)
  1. IRESSA [Suspect]
     Active Substance: GEFITINIB
     Indication: LUNG NEOPLASM MALIGNANT
     Route: 048
     Dates: start: 20161101, end: 201912

REACTIONS (2)
  - Dry skin [Recovered/Resolved]
  - Neoplasm progression [Not Recovered/Not Resolved]

NARRATIVE: CASE EVENT DATE: 201611
